FAERS Safety Report 4682699-8 (Version None)
Quarter: 2005Q2

REPORT INFORMATION
  Report Type: 
  Country: None (occurrence: None)
  Receive Date: 20050606
  Receipt Date: 20050531
  Transmission Date: 20051028
  Serious: Yes (Hospitalization)
  Sender: FDA-Public Use
  Company Number: 200511840FR

PATIENT
  Sex: Male

DRUGS (7)
  1. FLAGYL [Suspect]
     Indication: BACTERIAL INFECTION
     Route: 048
     Dates: start: 20050402, end: 20050404
  2. FLAGYL [Suspect]
     Indication: GASTROINTESTINAL INFECTION
     Route: 048
     Dates: start: 20050402, end: 20050404
  3. SPASFON [Suspect]
     Indication: ABDOMINAL PAIN
     Route: 048
     Dates: start: 20050330, end: 20050406
  4. CIPROFLOXACIN [Suspect]
     Indication: BACTERIAL INFECTION
     Route: 048
     Dates: start: 20050402, end: 20050404
  5. CIPROFLOXACIN [Suspect]
     Indication: GASTROINTESTINAL INFECTION
     Route: 048
     Dates: start: 20050402, end: 20050404
  6. MOTILYO [Suspect]
     Indication: ABDOMINAL PAIN
     Route: 048
     Dates: start: 20050330, end: 20050406
  7. DOLIPRANE [Concomitant]
     Route: 048
     Dates: start: 20050330

REACTIONS (4)
  - ALANINE AMINOTRANSFERASE INCREASED [None]
  - ASPARTATE AMINOTRANSFERASE INCREASED [None]
  - GAMMA-GLUTAMYLTRANSFERASE INCREASED [None]
  - JAUNDICE [None]
